FAERS Safety Report 4298968-X (Version None)
Quarter: 2004Q1

REPORT INFORMATION
  Report Type: 
  Country: None (occurrence: None)
  Receive Date: 20040217
  Receipt Date: 20040130
  Transmission Date: 20041129
  Serious: Yes (Hospitalization)
  Sender: FDA-Public Use
  Company Number: 2004MP000017

PATIENT
  Age: 39 Year
  Sex: Male

DRUGS (2)
  1. SALAGEN [Suspect]
     Indication: XEROPHTHALMIA
     Dosage: TID PO
     Route: 048
     Dates: start: 19991001
  2. FLUROMETHOLONE (FLUROMETHOLONE) [Concomitant]

REACTIONS (1)
  - GLIOMA [None]
